FAERS Safety Report 24217764 (Version 1)
Quarter: 2024Q3

REPORT INFORMATION
  Report Type: Report from Study
  Country: DE (occurrence: DE)
  Receive Date: 20240816
  Receipt Date: 20240816
  Transmission Date: 20241017
  Serious: Yes (Hospitalization)
  Sender: JOHNSON AND JOHNSON
  Company Number: DE-JNJFOC-20240775209

PATIENT
  Age: 29 Year
  Sex: Male
  Weight: 85 kg

DRUGS (5)
  1. SPRAVATO [Suspect]
     Active Substance: ESKETAMINE
     Indication: Depression
     Dosage: 28 MG (1 DEVICE)
     Dates: start: 20240524, end: 20240524
  2. SPRAVATO [Suspect]
     Active Substance: ESKETAMINE
     Dosage: STARTED AT 16:40
     Dates: start: 20240525, end: 20240525
  3. SPRAVATO [Suspect]
     Active Substance: ESKETAMINE
     Dosage: 56 MG (2 DEVICES)
     Dates: start: 20240527, end: 20240527
  4. SPRAVATO [Suspect]
     Active Substance: ESKETAMINE
     Dosage: 84 MG (3 DEVICES): 03-JUN-2024, 05-JUN-2024, 10-JUN-2024, 12-JUN-2024, 17-JUN-2024, 25-JUN-2024, 02-
     Dates: start: 20240529, end: 20240723
  5. ESCITALOPRAM [Concomitant]
     Active Substance: ESCITALOPRAM OXALATE
     Dosage: 1-0-0

REACTIONS (2)
  - Myocarditis [Recovering/Resolving]
  - Dyspnoea [Recovered/Resolved]

NARRATIVE: CASE EVENT DATE: 20240723
